FAERS Safety Report 7160519-X (Version None)
Quarter: 2010Q4

REPORT INFORMATION
  Report Type: 
  Country: None (occurrence: None)
  Receive Date: 20101214
  Receipt Date: 20101203
  Transmission Date: 20110411
  Serious: Yes (Life-Threatening, Hospitalization, Disabling, Other)
  Sender: FDA-Public Use
  Company Number: HR-PFIZER INC-2010163450

PATIENT
  Age: 40 Year
  Sex: Female

DRUGS (4)
  1. SALAZOPYRIN [Suspect]
     Indication: POLYARTHRITIS
     Dosage: 500 MG, UNK
     Route: 048
     Dates: start: 20090810, end: 20090820
  2. SALAZOPYRIN [Suspect]
     Dosage: 1000 MG, UNK
     Route: 048
     Dates: start: 20090820, end: 20100910
  3. MOVALIS [Concomitant]
     Indication: POLYARTHRITIS
     Dosage: 15 MG, 1X/DAY
     Route: 048
     Dates: start: 20090810, end: 20100910
  4. LUPOCET [Concomitant]
     Indication: POLYARTHRITIS
     Dosage: 500 MG, 2X/DAY
     Route: 048
     Dates: start: 20100810

REACTIONS (3)
  - PHOTOSENSITIVITY REACTION [None]
  - RENAL FAILURE CHRONIC [None]
  - SYSTEMIC LUPUS ERYTHEMATOSUS [None]
